FAERS Safety Report 5739286-X (Version None)
Quarter: 2008Q2

REPORT INFORMATION
  Report Type: 
  Country: None (occurrence: None)
  Receive Date: 20080515
  Receipt Date: 20080505
  Transmission Date: 20081010
  Serious: No
  Sender: FDA-Public Use
  Company Number: ES-BAXTER-2008BH004633

PATIENT
  Age: 64 Year
  Sex: Male

DRUGS (22)
  1. EXTRANEAL [Suspect]
     Indication: PERITONEAL DIALYSIS
     Route: 033
     Dates: start: 20080502
  2. BESITRAN [Concomitant]
     Route: 048
  3. ARTEDIL [Concomitant]
     Dosage: DOSE UNIT:UNKNOWN
     Route: 048
  4. FERIV [Concomitant]
     Route: 042
  5. ROCALTROL [Concomitant]
     Route: 048
  6. COZAAR [Concomitant]
     Route: 048
  7. CARBOCAL D [Concomitant]
     Route: 048
  8. PLAVIX [Concomitant]
     Dosage: DOSE UNIT:UNKNOWN
     Route: 048
  9. ESTOMIL [Concomitant]
     Dosage: DOSE UNIT:UNKNOWN
     Route: 048
  10. HIDROXIL B12 B6 B1 [Concomitant]
     Route: 048
  11. SEGURIL [Concomitant]
     Dosage: DOSE UNIT:UNKNOWN
     Route: 048
  12. DILUTOL [Concomitant]
     Dosage: DOSE UNIT:UNKNOWN
     Route: 048
  13. CLORAZEPATE DIPOTASSIUM [Concomitant]
     Dosage: DOSE UNIT:UNKNOWN
     Route: 048
  14. REDOXON [Concomitant]
     Route: 048
  15. PEPSAMAR [Concomitant]
     Route: 048
  16. COROPRES [Concomitant]
     Route: 048
  17. ZORATOR [Concomitant]
     Dosage: DOSE UNIT:UNKNOWN
     Route: 048
  18. NITROPLAST [Concomitant]
     Route: 061
  19. PHYSIONEAL 40 VIAFLEX [Concomitant]
     Indication: PERITONEAL DIALYSIS
     Route: 033
  20. NUTRINEAL PD4 VIAFLEX [Concomitant]
     Indication: PERITONEAL DIALYSIS
     Route: 033
  21. DIANEAL [Concomitant]
     Indication: PERITONEAL DIALYSIS
     Route: 033
  22. EPOETIN BETA [Concomitant]

REACTIONS (2)
  - ABDOMINAL PAIN [None]
  - HYPERHIDROSIS [None]
